FAERS Safety Report 14312711 (Version 3)
Quarter: 2018Q1

REPORT INFORMATION
  Report Type: Spontaneous
  Country: US (occurrence: US)
  Receive Date: 20171221
  Receipt Date: 20180103
  Transmission Date: 20180509
  Serious: Yes (Hospitalization, Other)
  Sender: FDA-Public Use
  Company Number: US-PFIZER INC-2017540603

PATIENT
  Age: 66 Year
  Sex: Male
  Weight: 108.8 kg

DRUGS (1)
  1. ATROPINE SULFATE/DIPHENOXYLATE HYDROCHLORIDE [Suspect]
     Active Substance: ATROPINE SULFATE\DIPHENOXYLATE HYDROCHLORIDE
     Indication: DIARRHOEA
     Dosage: UNK UNK, AS NEEDED (2.5-0.035 TABLET BY MOUTH TWICE DAILY AS NEEDED)
     Route: 048
     Dates: start: 2017

REACTIONS (9)
  - Abdominal pain [Recovered/Resolved]
  - Memory impairment [Unknown]
  - Bacterial infection [Unknown]
  - Oesophageal food impaction [Not Recovered/Not Resolved]
  - Cognitive disorder [Recovered/Resolved]
  - Nausea [Recovering/Resolving]
  - Somnolence [Recovered/Resolved]
  - Headache [Recovered/Resolved]
  - Lethargy [Recovered/Resolved]

NARRATIVE: CASE EVENT DATE: 2017
